FAERS Safety Report 13853308 (Version 3)
Quarter: 2025Q4

REPORT INFORMATION
  Report Type: Spontaneous
  Country: US (occurrence: US)
  Receive Date: 20170809
  Receipt Date: 20251127
  Transmission Date: 20260118
  Serious: No
  Sender: MERCK SHARP & DOHME LLC
  Company Number: US-009507513-1708USA003623

PATIENT
  Age: 26 Year
  Sex: Male

DRUGS (7)
  1. BRIDION [Interacting]
     Active Substance: SUGAMMADEX SODIUM
     Indication: Anaesthesia reversal
     Dosage: DOSE DESCRIPTION : 2 MG/KG, UNK
  2. ZEMURON [Interacting]
     Active Substance: ROCURONIUM BROMIDE
     Indication: Induction of anaesthesia
     Dosage: DOSE DESCRIPTION : UNK
  3. DESFLURANE [Interacting]
     Active Substance: DESFLURANE
     Indication: Maintenance of anaesthesia
     Dosage: DOSE DESCRIPTION : UNK
  4. MIDAZOLAM [Concomitant]
     Active Substance: MIDAZOLAM
     Indication: Premedication
     Dosage: DOSE DESCRIPTION : UNK
  5. SUFENTANIL [Concomitant]
     Active Substance: SUFENTANIL
     Indication: Induction of anaesthesia
     Dosage: DOSE DESCRIPTION : UNK
  6. LIDOCAINE [Concomitant]
     Active Substance: LIDOCAINE
     Indication: Induction of anaesthesia
     Dosage: DOSE DESCRIPTION : UNK
  7. PROPOFOL [Concomitant]
     Active Substance: PROPOFOL
     Indication: Induction of anaesthesia
     Dosage: DOSE DESCRIPTION : UNK

REACTIONS (2)
  - Drug interaction [Unknown]
  - Bronchospasm [Unknown]
